FAERS Safety Report 8764410 (Version 1)
Quarter: 2012Q4

REPORT INFORMATION
  Report Type: 
  Country: AR (occurrence: AR)
  Receive Date: 20120831
  Receipt Date: 20120831
  Transmission Date: 20130627
  Serious: Yes (Other)
  Sender: FDA-Public Use
  Company Number: PHHY2012AR075167

PATIENT
  Age: 78 Year
  Sex: Female

DRUGS (1)
  1. EXFORGE [Suspect]
     Indication: HYPERTENSION
     Dosage: 1 DF (160mg vals/ 10mg amlo), daily
     Dates: start: 2010

REACTIONS (3)
  - Diabetes mellitus [Unknown]
  - Malaise [Unknown]
  - Blood pressure increased [Recovered/Resolved]
